FAERS Safety Report 5750738-9 (Version None)
Quarter: 2008Q2

REPORT INFORMATION
  Report Type: 
  Country: None (occurrence: None)
  Receive Date: 20080523
  Receipt Date: 20080523
  Transmission Date: 20081010
  Serious: Yes (Hospitalization)
  Sender: FDA-Public Use
  Company Number: None

PATIENT
  Age: 90 Year
  Sex: Female
  Weight: 41 kg

DRUGS (10)
  1. WARFARIN SODIUM [Suspect]
     Indication: DEEP VEIN THROMBOSIS
     Dosage: 3 MG DAILY PO  CHRONIC
     Route: 048
  2. WARFARIN SODIUM [Suspect]
     Indication: PULMONARY EMBOLISM
     Dosage: 3 MG DAILY PO  CHRONIC
     Route: 048
  3. IRON [Concomitant]
  4. M.V.I. [Concomitant]
  5. ZOCOR [Concomitant]
  6. AVAPRO [Concomitant]
  7. AMIODARONE HCL [Concomitant]
  8. MEGACE [Concomitant]
  9. MIRALAX [Concomitant]
  10. CLONIDINE [Concomitant]

REACTIONS (3)
  - CEREBRAL HAEMORRHAGE [None]
  - INTERNATIONAL NORMALISED RATIO INCREASED [None]
  - MENTAL STATUS CHANGES [None]
